FAERS Safety Report 23027411 (Version 1)
Quarter: 2023Q4

REPORT INFORMATION
  Report Type: Spontaneous
  Country: US (occurrence: US)
  Receive Date: 20231004
  Receipt Date: 20231004
  Transmission Date: 20240109
  Serious: No
  Sender: FDA-Public Use
  Company Number: US-MELINTA THERAPEUTICS, LLC-US-MLNT-23-00363

PATIENT
  Age: 29 Year
  Sex: Male

DRUGS (4)
  1. KIMYRSA [Suspect]
     Active Substance: ORITAVANCIN DIPHOSPHATE
     Indication: Tenosynovitis
     Dosage: 1200 MILLIGRAM, QN
     Route: 042
     Dates: start: 20230422, end: 20230422
  2. UNASYN [Concomitant]
     Active Substance: AMPICILLIN SODIUM\SULBACTAM SODIUM
     Indication: Tenosynovitis
  3. VANCOMYCIN [Concomitant]
     Active Substance: VANCOMYCIN
     Indication: Tenosynovitis
  4. CEFTRIAXONE [Concomitant]
     Active Substance: CEFTRIAXONE\CEFTRIAXONE SODIUM
     Indication: Tenosynovitis

REACTIONS (3)
  - Infusion related reaction [Unknown]
  - Off label use [Unknown]
  - Incorrect product administration duration [Unknown]

NARRATIVE: CASE EVENT DATE: 20230422
